FAERS Safety Report 5926504-8 (Version None)
Quarter: 2008Q4

REPORT INFORMATION
  Report Type: 
  Country: None (occurrence: None)
  Receive Date: 20081021
  Receipt Date: 20080702
  Transmission Date: 20090506
  Serious: Yes (Hospitalization)
  Sender: FDA-Public Use
  Company Number: DL2008271

PATIENT
  Age: 19 Year
  Sex: Female

DRUGS (4)
  1. MIFEPRISTONE [Suspect]
     Indication: ABORTION INDUCED
     Dosage: 200 MG, ORAL
     Route: 048
     Dates: start: 20080416
  2. MISOPROSTOL [Suspect]
     Dosage: 800 MCG, BUCCAL
     Route: 002
     Dates: start: 20080420, end: 20080421
  3. MISOPROSTOL [Suspect]
     Dosage: 800 MCG, BUCCAL
     Route: 002
     Dates: start: 20080417
  4. DOXYCYCLINE [Concomitant]

REACTIONS (6)
  - ABORTION INCOMPLETE [None]
  - ANAEMIA [None]
  - MENORRHAGIA [None]
  - NAUSEA [None]
  - SYNCOPE [None]
  - VOMITING [None]
